FAERS Safety Report 7881284-4 (Version None)
Quarter: 2011Q4

REPORT INFORMATION
  Report Type: 
  Country: None (occurrence: None)
  Receive Date: 20111101
  Receipt Date: 20111026
  Transmission Date: 20120403
  Serious: Yes (Hospitalization, Other)
  Sender: FDA-Public Use
  Company Number: US-RB-033680-11

PATIENT
  Age: 40 Year
  Sex: Female

DRUGS (9)
  1. SUBOXONE [Suspect]
     Indication: DRUG DEPENDENCE
     Dosage: 20 MG DAILY
     Route: 060
     Dates: start: 20070101, end: 20110606
  2. SOMA [Concomitant]
     Indication: FIBROMYALGIA
     Route: 065
  3. SEROQUEL [Concomitant]
     Indication: BIPOLAR DISORDER
     Dosage: 25 MG DAILY
     Route: 065
  4. KEPPRA [Concomitant]
     Indication: CONVULSION
     Route: 065
     Dates: start: 20100101
  5. LYRICA [Concomitant]
     Indication: FIBROMYALGIA
     Dosage: 100 MG DAILY
     Route: 065
  6. SUBOXONE [Suspect]
     Dosage: 20 MG DAILY
     Route: 060
     Dates: start: 20110801
  7. LYRICA [Concomitant]
     Indication: DEPRESSION
     Dosage: 100 MG DAILY
     Route: 065
  8. KEPPRA [Concomitant]
     Route: 065
     Dates: start: 20100101
  9. KLONOPIN [Concomitant]
     Indication: PRODUCT USED FOR UNKNOWN INDICATION
     Route: 065

REACTIONS (6)
  - THINKING ABNORMAL [None]
  - CONVULSION [None]
  - FOOT FRACTURE [None]
  - GRAND MAL CONVULSION [None]
  - PAIN IN EXTREMITY [None]
  - FALL [None]
